FAERS Safety Report 10581034 (Version 2)
Quarter: 2014Q4

REPORT INFORMATION
  Report Type: Spontaneous
  Country: JP (occurrence: None)
  Receive Date: 20141110
  Receipt Date: 20141120
  Transmission Date: 20150529
  Serious: Yes (Hospitalization)
  Sender: FDA-Public Use
  Company Number: JP-017601

PATIENT
  Age: 84 Year
  Sex: Male
  Weight: 78 kg

DRUGS (4)
  1. DEGARELIX (DEGARELIX) (240 MG, 480 MG) [Suspect]
     Active Substance: DEGARELIX
     Indication: PROSTATE CANCER
     Route: 058
     Dates: start: 20140212, end: 20140212
  2. MAGMITT [Concomitant]
     Active Substance: MAGNESIUM OXIDE
  3. AMLODIPINE BESILATE [Concomitant]
     Active Substance: AMLODIPINE BESYLATE
  4. PANALDINE [Concomitant]
     Active Substance: TICLOPIDINE HYDROCHLORIDE

REACTIONS (9)
  - Dyspnoea exertional [None]
  - Chronic kidney disease [None]
  - Coordination abnormal [None]
  - Cardiomegaly [None]
  - Electrocardiogram ST segment depression [None]
  - Angina unstable [None]
  - Left ventricular hypertrophy [None]
  - Sinus rhythm [None]
  - Electrocardiogram abnormal [None]

NARRATIVE: CASE EVENT DATE: 20141017
